FAERS Safety Report 20872763 (Version 7)
Quarter: 2023Q4

REPORT INFORMATION
  Report Type: Report from Study
  Country: AT (occurrence: AT)
  Receive Date: 20220525
  Receipt Date: 20231107
  Transmission Date: 20240110
  Serious: Yes (Other)
  Sender: FDA-Public Use
  Company Number: AT-PFM-2022-04272

PATIENT
  Sex: Female
  Weight: 85 kg

DRUGS (13)
  1. BRAFTOVI [Suspect]
     Active Substance: ENCORAFENIB
     Indication: Colorectal cancer
     Dosage: 300 MG/DAY
     Route: 048
     Dates: start: 20220221
  2. CETUXIMAB [Suspect]
     Active Substance: CETUXIMAB
     Indication: Colorectal cancer
     Dosage: 500 MG/M2, WEEKLY, FORMULATION- LIQUID
     Route: 042
     Dates: start: 20220221
  3. ASTEC [BUPRENORPHINE] [Concomitant]
     Indication: Prophylaxis
     Dosage: 52.5 UG/H, UNK
     Route: 062
  4. NOVALGIN 500 [CAFFEINE;PARACETAMOL;PROPYPHENAZONE] [Concomitant]
     Indication: Prophylaxis
     Dosage: 20 DROP, 3X/DAY (20 GTT, TID (3/DAY))
     Route: 048
  5. PEMBROLIZUMAB [Concomitant]
     Active Substance: PEMBROLIZUMAB
     Indication: Papillary renal cell carcinoma
     Dosage: 200 MG, EVERY 3 WEEKS
     Route: 042
     Dates: start: 20220629, end: 20220916
  6. DULOXETINE [Concomitant]
     Active Substance: DULOXETINE
     Indication: Depression
     Dosage: 60 MG, DAILY
     Route: 048
     Dates: start: 20220221, end: 20220916
  7. DULOXETINE [Concomitant]
     Active Substance: DULOXETINE
     Dosage: 90 MG, DAILY
     Route: 048
     Dates: start: 20220916
  8. MIRTAZAPINE [Concomitant]
     Active Substance: MIRTAZAPINE
     Indication: Depression
     Dosage: 30 MG, DAILY
     Route: 048
     Dates: start: 20220221, end: 20220916
  9. MIRTAZAPINE [Concomitant]
     Active Substance: MIRTAZAPINE
     Dosage: 15 MG, DAILY
     Route: 048
     Dates: start: 20220916
  10. SODIUM PERCHLORATE [Concomitant]
     Active Substance: SODIUM PERCHLORATE
     Dosage: 21 DROP, DAILY (21 GTT, DAILY )
     Route: 048
     Dates: start: 20220906, end: 20220916
  11. OLEOVIT [BENZALKONIUM CHLORIDE;DEXPANTHENOL;RETINOL PALMITATE] [Concomitant]
     Dosage: 60 DROP, WEEKLY (60 GTT, WEEKLY)
     Route: 048
     Dates: start: 20220916
  12. PREGABALIN [Concomitant]
     Active Substance: PREGABALIN
     Dosage: 75 MG, DAILY
     Route: 048
     Dates: start: 20220916
  13. EUTHYROX [Concomitant]
     Active Substance: LEVOTHYROXINE SODIUM
     Indication: Hypothyroidism
     Dosage: 50 UG, DAILY
     Route: 048
     Dates: start: 20221025

REACTIONS (5)
  - Second primary malignancy [Recovered/Resolved]
  - Malignant melanoma [Recovered/Resolved]
  - Rash [Recovered/Resolved]
  - Off label use [Unknown]
  - Product use issue [Unknown]

NARRATIVE: CASE EVENT DATE: 20220407
